FAERS Safety Report 13428108 (Version 3)
Quarter: 2017Q3

REPORT INFORMATION
  Report Type: Report from Study
  Country: None (occurrence: US)
  Receive Date: 20170411
  Receipt Date: 20170702
  Transmission Date: 20171127
  Serious: Yes (Other)
  Sender: FDA-Public Use
  Company Number: US-ABBVIE-17K-163-1937773-00

PATIENT
  Age: 46 Year
  Sex: Male
  Weight: 66.74 kg

DRUGS (2)
  1. HUMIRA [Suspect]
     Active Substance: ADALIMUMAB
     Indication: PSORIATIC ARTHROPATHY
     Route: 058
     Dates: start: 201610, end: 201701
  2. HUMIRA [Suspect]
     Active Substance: ADALIMUMAB
     Route: 058
     Dates: start: 201705

REACTIONS (6)
  - Inguinal hernia [Recovered/Resolved]
  - Therapeutic response shortened [Not Recovered/Not Resolved]
  - Lymph node pain [Unknown]
  - Paraesthesia [Recovered/Resolved]
  - Feeling hot [Unknown]
  - Rash vesicular [Unknown]

NARRATIVE: CASE EVENT DATE: 2017
